FAERS Safety Report 12737913 (Version 1)
Quarter: 2016Q3

REPORT INFORMATION
  Report Type: Spontaneous
  Country: US (occurrence: US)
  Receive Date: 20160913
  Receipt Date: 20160913
  Transmission Date: 20161109
  Serious: No
  Sender: FDA-Public Use
  Company Number: US-TEVA-682255USA

PATIENT
  Sex: Female

DRUGS (2)
  1. NUVIGIL [Suspect]
     Active Substance: ARMODAFINIL
     Indication: NARCOLEPSY
     Route: 065
  2. PROAIR HFA [Suspect]
     Active Substance: ALBUTEROL SULFATE
     Route: 065

REACTIONS (7)
  - Drug ineffective [Unknown]
  - Somnolence [Unknown]
  - Hypersensitivity [Unknown]
  - Intentional product use issue [Unknown]
  - Drug tolerance [Unknown]
  - Intentional product misuse [Unknown]
  - Nasal congestion [Unknown]
